FAERS Safety Report 5222812-7 (Version None)
Quarter: 2007Q1

REPORT INFORMATION
  Report Type: 
  Country: None (occurrence: None)
  Receive Date: 20070129
  Receipt Date: 20070124
  Transmission Date: 20070707
  Serious: Yes (Hospitalization)
  Sender: FDA-Public Use
  Company Number: DE-GLAXOSMITHKLINE-B0431057A

PATIENT
  Age: 28 Year
  Sex: Male
  Weight: 97 kg

DRUGS (2)
  1. LAMICTAL [Suspect]
     Indication: EPILEPSY
     Route: 048
     Dates: start: 20060120
  2. DIAZEPAM [Concomitant]
     Route: 065
     Dates: start: 20060104

REACTIONS (2)
  - CONVULSION [None]
  - DRUG INEFFECTIVE [None]
